FAERS Safety Report 17682986 (Version 1)
Quarter: 2020Q2

REPORT INFORMATION
  Report Type: Other
  Country: US (occurrence: US)
  Receive Date: 20200420
  Receipt Date: 20200420
  Transmission Date: 20200714
  Serious: Yes (Hospitalization, Other)
  Sender: FDA-Public Use
  Company Number: US-VISTA PHARMACEUTICALS INC.-2082994

PATIENT
  Age: 11 Year
  Sex: Female

DRUGS (3)
  1. SULFAMETHOXAZOLE AND TRIMETHOPRIM [Suspect]
     Active Substance: SULFAMETHOXAZOLE\TRIMETHOPRIM
     Indication: ERYTHEMA
     Route: 065
  2. DOXYCYCLINE. [Concomitant]
     Active Substance: DOXYCYCLINE
     Route: 065
  3. CLINDAMYCIN. [Concomitant]
     Active Substance: CLINDAMYCIN
     Route: 065

REACTIONS (8)
  - C-reactive protein increased [Unknown]
  - Leukocytosis [Unknown]
  - Hypotension [Unknown]
  - Pyrexia [Unknown]
  - Toxicity to various agents [Unknown]
  - Blood lactic acid increased [Unknown]
  - Sepsis [Unknown]
  - Vomiting [Unknown]
